FAERS Safety Report 16244980 (Version 4)
Quarter: 2020Q2

REPORT INFORMATION
  Report Type: Spontaneous
  Country: FR (occurrence: FR)
  Receive Date: 20190426
  Receipt Date: 20200623
  Transmission Date: 20200713
  Serious: Yes (Hospitalization)
  Sender: FDA-Public Use
  Company Number: FR-PFIZER INC-2019166043

PATIENT
  Age: 1 Year
  Sex: Female

DRUGS (10)
  1. AUGMENTIN [Suspect]
     Active Substance: AMOXICILLIN\CLAVULANATE POTASSIUM
     Indication: CELLULITIS
     Dosage: 100 MG/KG, DAILY
     Route: 042
  2. AMIKACIN. [Suspect]
     Active Substance: AMIKACIN
     Indication: LYMPHADENITIS
  3. CEFTRIAXONE. [Suspect]
     Active Substance: CEFTRIAXONE
     Indication: CELLULITIS
     Dosage: 50 MG/KG, DAILY
     Route: 042
  4. DALACINE [Suspect]
     Active Substance: CLINDAMYCIN
     Indication: CELLULITIS
     Dosage: 40 MG/KG, DAILY
  5. DALACINE [Suspect]
     Active Substance: CLINDAMYCIN
     Indication: OSTEOMYELITIS
  6. CEFTRIAXONE. [Suspect]
     Active Substance: CEFTRIAXONE
     Indication: OSTEOMYELITIS
  7. DALACINE [Suspect]
     Active Substance: CLINDAMYCIN
     Indication: LYMPHADENITIS
  8. CEFTRIAXONE. [Suspect]
     Active Substance: CEFTRIAXONE
     Indication: LYMPHADENITIS
     Dosage: 100 MG/KG, DAILY
  9. AMIKACIN. [Suspect]
     Active Substance: AMIKACIN
     Indication: CELLULITIS
     Dosage: 15 MG/KG, DAILY
     Route: 042
  10. AUGMENTIN [Suspect]
     Active Substance: AMOXICILLIN\CLAVULANATE POTASSIUM
     Indication: LYMPHADENITIS

REACTIONS (1)
  - Pyrexia [Recovered/Resolved]
